FAERS Safety Report 9518684 (Version 1)
Quarter: 2013Q3

REPORT INFORMATION
  Report Type: Report from Study
  Country: NL (occurrence: NL)
  Receive Date: 20130912
  Receipt Date: 20130912
  Transmission Date: 20140515
  Serious: Yes (Death)
  Sender: FDA-Public Use
  Company Number: PHHY2013NL100417

PATIENT
  Age: 66 Year
  Sex: Female

DRUGS (2)
  1. TOBI [Suspect]
     Indication: BRONCHIECTASIS
     Dosage: UNK (ACCORDING TO 28 DAY SHEDULE)
  2. TOBI [Suspect]
     Indication: OFF LABEL USE

REACTIONS (1)
  - Death [Fatal]
